FAERS Safety Report 7342889-2 (Version None)
Quarter: 2011Q1

REPORT INFORMATION
  Report Type: 
  Country: None (occurrence: None)
  Receive Date: 20110302
  Receipt Date: 20110215
  Transmission Date: 20110831
  Serious: Yes (Hospitalization)
  Sender: FDA-Public Use
  Company Number: ADE2009-0630

PATIENT
  Age: 46 Year
  Sex: Male

DRUGS (2)
  1. RAMIPRIL [Suspect]
     Dosage: 35 G, ONE TIME;
  2. METFORMIN HCL [Suspect]
     Dosage: 56 G, ONE TIME;

REACTIONS (21)
  - ABDOMINAL PAIN [None]
  - DEHYDRATION [None]
  - CARDIO-RESPIRATORY ARREST [None]
  - MULTIPLE DRUG OVERDOSE [None]
  - PALLOR [None]
  - RENAL IMPAIRMENT [None]
  - CONTINUOUS HAEMODIAFILTRATION [None]
  - BODY TEMPERATURE DECREASED [None]
  - DIARRHOEA [None]
  - COMPARTMENT SYNDROME [None]
  - COMA SCALE ABNORMAL [None]
  - VOMITING [None]
  - TACHYPNOEA [None]
  - APNOEA [None]
  - RHABDOMYOLYSIS [None]
  - ALCOHOL USE [None]
  - LACTIC ACIDOSIS [None]
  - BLOOD PRESSURE DIASTOLIC DECREASED [None]
  - HYPOTENSION [None]
  - LEG AMPUTATION [None]
  - PARTIAL SEIZURES [None]
